FAERS Safety Report 6026856-7 (Version None)
Quarter: 2009Q1

REPORT INFORMATION
  Report Type: 
  Country: None (occurrence: None)
  Receive Date: 20090105
  Receipt Date: 20081231
  Transmission Date: 20090719
  Serious: Yes (Other)
  Sender: FDA-Public Use
  Company Number: US-BAYER-200836991NA

PATIENT
  Age: 45 Year
  Sex: Female
  Weight: 108 kg

DRUGS (6)
  1. MIRENA [Suspect]
     Indication: CONTRACEPTION
     Route: 015
     Dates: start: 20080730
  2. TAMBOCOR [Concomitant]
     Dates: start: 20081024
  3. NEURONTIN [Concomitant]
  4. HYDROCHLOROTHIAZIDE [Concomitant]
  5. POTASSIUM CHLORIDE [Concomitant]
  6. PRESCRIPTION VIT B [Concomitant]

REACTIONS (3)
  - ARRHYTHMIA [None]
  - PALPITATIONS [None]
  - PROCEDURAL PAIN [None]
